FAERS Safety Report 7289928-5 (Version None)
Quarter: 2011Q1

REPORT INFORMATION
  Report Type: 
  Country: None (occurrence: None)
  Receive Date: 20110214
  Receipt Date: 20110207
  Transmission Date: 20110831
  Serious: Yes (Hospitalization)
  Sender: FDA-Public Use
  Company Number: US-ASTELLAS-2011EU000641

PATIENT
  Sex: Male
  Weight: 127.1 kg

DRUGS (17)
  1. MYFORTIC [Suspect]
     Dosage: 720 MG, BID
     Route: 048
     Dates: start: 20101202
  2. RENAGEL [Concomitant]
     Dosage: UNK
     Route: 065
  3. PRILOSEC [Concomitant]
     Dosage: UNK
     Route: 065
  4. ZYLOPRIM [Concomitant]
     Dosage: UNK
     Route: 065
  5. TACROLIMUS [Suspect]
     Indication: RENAL TRANSPLANT
     Dosage: UNK
     Route: 065
  6. CRESTOR [Concomitant]
     Dosage: UNK
     Route: 065
  7. SIMULECT [Concomitant]
     Dosage: UNK
     Route: 065
  8. LASIX [Concomitant]
     Dosage: UNK
     Route: 065
  9. ZYRTEC [Concomitant]
     Dosage: UNK
     Route: 065
  10. GLUCOTROL [Concomitant]
     Dosage: UNK
     Route: 065
  11. MYFORTIC [Suspect]
     Indication: RENAL TRANSPLANT
     Dosage: 720 MG, BID
     Route: 065
     Dates: start: 20101115, end: 20101130
  12. DOCUSATE SODIUM [Concomitant]
     Dosage: UNK
     Route: 065
  13. XANAX [Concomitant]
     Dosage: UNK
     Route: 065
  14. NORMODYNE [Concomitant]
     Dosage: UNK
     Route: 065
  15. DILTIAZEM [Concomitant]
     Dosage: UNK
     Route: 065
  16. LANTUS [Concomitant]
     Dosage: UNK
     Route: 065
  17. ASPIRIN [Concomitant]
     Dosage: UNK
     Route: 065

REACTIONS (3)
  - THROMBOTIC MICROANGIOPATHY [None]
  - SMALL INTESTINAL OBSTRUCTION [None]
  - ACUTE RESPIRATORY FAILURE [None]
